FAERS Safety Report 5045009-2 (Version None)
Quarter: 2006Q2

REPORT INFORMATION
  Report Type: 
  Country: None (occurrence: None)
  Receive Date: 20060601
  Receipt Date: 20060315
  Transmission Date: 20061013
  Serious: No
  Sender: FDA-Public Use
  Company Number: US200603003982

PATIENT
  Age: 65 Year
  Sex: Male

DRUGS (2)
  1. CYMBALTA [Suspect]
     Indication: ANXIETY
     Dosage: 30 MG DAILY (1/D) ORAL
     Route: 048
     Dates: start: 20060101
  2. CLONAZEPAM [Concomitant]

REACTIONS (1)
  - BLOOD PRESSURE INCREASED [None]
